FAERS Safety Report 9336392 (Version 1)
Quarter: 2013Q2

REPORT INFORMATION
  Report Type: Report from Study
  Country: FR (occurrence: FR)
  Receive Date: 20130607
  Receipt Date: 20130607
  Transmission Date: 20140414
  Serious: Yes (Other)
  Sender: FDA-Public Use
  Company Number: FR-BAYER-2013-068687

PATIENT
  Sex: 0
  Weight: .6 kg

DRUGS (3)
  1. LOW-DOSE ASPIRIN [Suspect]
     Route: 064
  2. HEPARIN [Suspect]
     Dosage: UNK
     Route: 064
  3. PREDNISONE [Suspect]
     Route: 064

REACTIONS (3)
  - Premature baby [None]
  - Low birth weight baby [None]
  - Foetal exposure during pregnancy [None]
